FAERS Safety Report 10023007 (Version 1)
Quarter: 2014Q1

REPORT INFORMATION
  Report Type: Spontaneous
  Country: US (occurrence: US)
  Receive Date: 20140319
  Receipt Date: 20140319
  Transmission Date: 20141002
  Serious: No
  Sender: FDA-Public Use
  Company Number: -SAAVPROD-LEUK-1000364

PATIENT
  Age: 52 Year
  Sex: Female

DRUGS (5)
  1. SARGRAMOSTIM [Suspect]
     Indication: NEUTROPENIA
     Dosage: 500 MCG, QD
     Route: 065
     Dates: start: 20130626, end: 20130627
  2. SARGRAMOSTIM [Suspect]
     Indication: NEUTROPENIA
     Dosage: 500 MCG, QD
     Route: 065
     Dates: start: 20130710, end: 20130710
  3. CHEMOTHERAPEUTICS NOS [Concomitant]
     Indication: PRODUCT USED FOR UNKNOWN INDICATION
     Dosage: UNK
     Route: 065
     Dates: start: 20130617, end: 20130617
  4. CHEMOTHERAPEUTICS NOS [Concomitant]
     Indication: PRODUCT USED FOR UNKNOWN INDICATION
     Dosage: UNK
     Route: 065
     Dates: start: 20130708, end: 20130708
  5. FILGRASTIM [Concomitant]
     Indication: NEUTROPENIA
     Dosage: UNK
     Route: 065
     Dates: start: 201307

REACTIONS (3)
  - Pain [Unknown]
  - Nausea [Unknown]
  - Diarrhoea [Unknown]
